FAERS Safety Report 11295092 (Version 7)
Quarter: 2015Q4

REPORT INFORMATION
  Report Type: Report from Study
  Country: FR (occurrence: FR)
  Receive Date: 20150723
  Receipt Date: 20151123
  Transmission Date: 20160304
  Serious: Yes (Other)
  Sender: FDA-Public Use
  Company Number: FR-TEVA-580782USA

PATIENT
  Age: 55 Year
  Sex: Male

DRUGS (4)
  1. VEPESIDE [Suspect]
     Active Substance: ETOPOSIDE
     Indication: PRODUCT USED FOR UNKNOWN INDICATION
     Dosage: 200 MG/M2, CYCLIC (1,1 DAYS)
     Route: 042
     Dates: start: 20150625, end: 20150628
  2. BENDAMUSTINE HYDROCHLORIDE [Suspect]
     Active Substance: BENDAMUSTINE HYDROCHLORIDE
     Indication: PRODUCT USED FOR UNKNOWN INDICATION
     Route: 042
     Dates: start: 20150623, end: 20150624
  3. ARACYTINE [Suspect]
     Active Substance: CYTARABINE
     Indication: PRODUCT USED FOR UNKNOWN INDICATION
     Dosage: 400 MG/M2, CYCLIC (1,1 DAYS)
     Route: 042
     Dates: start: 20150625, end: 20150628
  4. ALKERAN [Suspect]
     Active Substance: MELPHALAN
     Indication: PRODUCT USED FOR UNKNOWN INDICATION
     Route: 042
     Dates: start: 20150629, end: 20150629

REACTIONS (8)
  - Acute kidney injury [Recovered/Resolved]
  - Cholestasis [Recovering/Resolving]
  - Weight increased [Recovering/Resolving]
  - Thrombocytopenia [Recovering/Resolving]
  - Venoocclusive disease [Recovered/Resolved]
  - Ascites [Recovering/Resolving]
  - Off label use [Unknown]
  - Hyperbilirubinaemia [Recovered/Resolved]

NARRATIVE: CASE EVENT DATE: 201507
